FAERS Safety Report 13377729 (Version 2)
Quarter: 2017Q2

REPORT INFORMATION
  Report Type: Spontaneous
  Country: US (occurrence: US)
  Receive Date: 20170328
  Receipt Date: 20170404
  Transmission Date: 20170830
  Serious: Yes (Other)
  Sender: FDA-Public Use
  Company Number: US-JNJFOC-20170324528

PATIENT
  Age: 61 Year
  Sex: Female
  Weight: 94.35 kg

DRUGS (4)
  1. DURAGESIC [Suspect]
     Active Substance: FENTANYL
     Indication: NEURALGIA
     Dosage: 100 MCG + 25 MCG EVERY 2 OR 2.5 DAYS
     Route: 062
  2. DURAGESIC [Suspect]
     Active Substance: FENTANYL
     Indication: NEURALGIA
     Dosage: 25 MCG (5 PATCHES), EVERY 2 OR 2.5 DAYS
     Route: 062
  3. GABAPENTIN. [Concomitant]
     Active Substance: GABAPENTIN
     Indication: PAIN
     Route: 065
  4. DURAGESIC [Suspect]
     Active Substance: FENTANYL
     Indication: NEURALGIA
     Route: 062

REACTIONS (10)
  - Drug dose omission [Unknown]
  - Wrong technique in product usage process [Unknown]
  - Product availability issue [Unknown]
  - Blood pressure increased [Unknown]
  - Seizure [Not Recovered/Not Resolved]
  - Visual impairment [Not Recovered/Not Resolved]
  - Pain [Unknown]
  - Loss of consciousness [Not Recovered/Not Resolved]
  - Product adhesion issue [Unknown]
  - Product quality issue [Unknown]

NARRATIVE: CASE EVENT DATE: 20170321
